FAERS Safety Report 5486545-4 (Version None)
Quarter: 2007Q3

REPORT INFORMATION
  Report Type: 
  Country: None (occurrence: None)
  Receive Date: 20070919
  Receipt Date: 20070521
  Transmission Date: 20080115
  Serious: No
  Sender: FDA-Public Use
  Company Number: 2007RL000223

PATIENT
  Age: 68 Year
  Sex: Female
  Weight: 48.0813 kg

DRUGS (6)
  1. OMACOR [Suspect]
     Indication: BLOOD CHOLESTEROL INCREASED
     Dosage: 1 GM; QD; PO, 2 GM; BID; PO
     Route: 048
     Dates: start: 20070101, end: 20070401
  2. OMACOR [Suspect]
     Indication: BLOOD CHOLESTEROL INCREASED
     Dosage: 1 GM; QD; PO, 2 GM; BID; PO
     Route: 048
     Dates: start: 20070401
  3. RED YEAST RICE [Suspect]
     Indication: BLOOD CHOLESTEROL INCREASED
     Dosage: 1; BID;, 2; BID;, 1; BID;
     Dates: start: 20070401, end: 20070401
  4. RED YEAST RICE [Suspect]
     Indication: BLOOD CHOLESTEROL INCREASED
     Dosage: 1; BID;, 2; BID;, 1; BID;
     Dates: end: 20070401
  5. RED YEAST RICE [Suspect]
     Indication: BLOOD CHOLESTEROL INCREASED
     Dosage: 1; BID;, 2; BID;, 1; BID;
     Dates: start: 20070401, end: 20070520
  6. VITAMINS NOS [Concomitant]

REACTIONS (5)
  - BLOOD CHOLESTEROL DECREASED [None]
  - HIGH DENSITY LIPOPROTEIN DECREASED [None]
  - HOT FLUSH [None]
  - OFF LABEL USE [None]
  - THERAPEUTIC RESPONSE UNEXPECTED [None]
